FAERS Safety Report 20078605 (Version 4)
Quarter: 2022Q1

REPORT INFORMATION
  Report Type: Spontaneous
  Country: None (occurrence: BR)
  Receive Date: 20211117
  Receipt Date: 20220110
  Transmission Date: 20220423
  Serious: Yes (Hospitalization)
  Sender: FDA-Public Use
  Company Number: BR-AKCEA THERAPEUTICS, INC.-2021IS001848

PATIENT
  Sex: Male

DRUGS (2)
  1. TEGSEDI [Suspect]
     Active Substance: INOTERSEN SODIUM
     Indication: Product used for unknown indication
     Route: 065
  2. DEVICE [Suspect]
     Active Substance: DEVICE

REACTIONS (6)
  - Oxygen saturation decreased [Unknown]
  - Malaise [Unknown]
  - Tremor [Unknown]
  - Vomiting [Unknown]
  - Hypotension [Unknown]
  - White blood cell count decreased [Unknown]

NARRATIVE: CASE EVENT DATE: 20211028
